FAERS Safety Report 12727194 (Version 1)
Quarter: 2016Q3

REPORT INFORMATION
  Report Type: Spontaneous
  Country: IR (occurrence: IR)
  Receive Date: 20160909
  Receipt Date: 20160909
  Transmission Date: 20161109
  Serious: Yes (Other)
  Sender: FDA-Public Use
  Company Number: IR-GLENMARK PHARMACEUTICALS INC, USA.-2016GMK024195

PATIENT
  Age: 40 Year
  Sex: Female

DRUGS (1)
  1. TOPIRAMATE. [Suspect]
     Active Substance: TOPIRAMATE
     Indication: MIGRAINE
     Dosage: UNK

REACTIONS (4)
  - Iris adhesions [Recovered/Resolved]
  - Hypopyon [Recovered/Resolved]
  - Cataract [Recovered/Resolved]
  - Iridocyclitis [Recovered/Resolved]
